FAERS Safety Report 18929126 (Version 1)
Quarter: 2021Q1

REPORT INFORMATION
  Report Type: Spontaneous
  Country: US (occurrence: US)
  Receive Date: 20210223
  Receipt Date: 20210223
  Transmission Date: 20210420
  Serious: No
  Sender: FDA-Public Use
  Company Number: US-ROCHE-2641653

PATIENT
  Age: 15 Year
  Sex: Male

DRUGS (1)
  1. NUTROPIN AQ [Suspect]
     Active Substance: SOMATROPIN
     Indication: BLOOD GROWTH HORMONE
     Route: 058
     Dates: start: 201905

REACTIONS (2)
  - Drug ineffective [Unknown]
  - Injection site pain [Unknown]

NARRATIVE: CASE EVENT DATE: 20200713
